FAERS Safety Report 16619332 (Version 1)
Quarter: 2019Q3

REPORT INFORMATION
  Report Type: Spontaneous
  Country: BR (occurrence: BR)
  Receive Date: 20190723
  Receipt Date: 20190723
  Transmission Date: 20191004
  Serious: Yes (Hospitalization, Other)
  Sender: FDA-Public Use
  Company Number: BR-BAYER-2019-137193

PATIENT
  Age: 48 Year
  Sex: Female

DRUGS (10)
  1. RIOCIGUAT (GUANYLATE CYCLASE STIMULATOR) [Suspect]
     Active Substance: RIOCIGUAT
     Indication: PULMONARY ARTERIAL HYPERTENSION
  2. RIVOTRIL [Concomitant]
     Active Substance: CLONAZEPAM
     Indication: PANIC REACTION
  3. CARBOLITIUM [Concomitant]
     Active Substance: LITHIUM CARBONATE
     Indication: PANIC REACTION
  4. FUROSEMIDA [FUROSEMIDE] [Concomitant]
  5. RIVOTRIL [Concomitant]
     Active Substance: CLONAZEPAM
     Indication: DEPRESSION
  6. SEROQUEL [Concomitant]
     Active Substance: QUETIAPINE FUMARATE
     Indication: PANIC REACTION
  7. SEROQUEL [Concomitant]
     Active Substance: QUETIAPINE FUMARATE
     Indication: DEPRESSION
  8. MAREVAN [Concomitant]
     Active Substance: WARFARIN SODIUM
  9. BOSENTANA [BOSENTAN] [Concomitant]
  10. VALPROIC ACID. [Concomitant]
     Active Substance: VALPROIC ACID

REACTIONS (3)
  - Pulmonary embolism [None]
  - Blood creatinine increased [None]
  - Subcutaneous haematoma [None]
